FAERS Safety Report 15188819 (Version 3)
Quarter: 2019Q3

REPORT INFORMATION
  Report Type: Report from Study
  Country: ES (occurrence: ES)
  Receive Date: 20180724
  Receipt Date: 20190815
  Transmission Date: 20191004
  Serious: Yes (Hospitalization)
  Sender: FDA-Public Use
  Company Number: ES-SA-2018SA142492

PATIENT
  Age: 74 Year
  Sex: Male
  Weight: 79 kg

DRUGS (25)
  1. IRINOTECAN [Suspect]
     Active Substance: IRINOTECAN
     Dosage: 342 MG, 1/24 HR (QCY)
     Route: 042
     Dates: start: 20180424, end: 20180424
  2. AMLODIPINE [Concomitant]
     Active Substance: AMLODIPINE BESYLATE
     Indication: HYPERTENSION
     Dosage: 5 MG, QD
     Route: 048
  3. FLUOROURACIL. [Suspect]
     Active Substance: FLUOROURACIL
     Indication: COLORECTAL CANCER METASTATIC
     Dosage: 760 MG, QCY- 1/24HR
     Route: 040
     Dates: start: 20180514, end: 20180514
  4. CODEINE [Concomitant]
     Active Substance: CODEINE
     Indication: ANALGESIC THERAPY
     Dosage: 126 MG/ML
     Route: 048
     Dates: start: 20180504
  5. SPIRONOLACTONE. [Concomitant]
     Active Substance: SPIRONOLACTONE
     Dosage: 100 MG
     Dates: start: 20180604, end: 20180609
  6. MORPHINE [Concomitant]
     Active Substance: MORPHINE
     Dosage: 5000 MG, QD
     Dates: start: 20180601, end: 20180609
  7. ENALAPRIL [Concomitant]
     Active Substance: ENALAPRIL
     Indication: HYPERTENSION
     Dosage: 20 MG, QD
     Route: 048
  8. FLUOROURACIL. [Suspect]
     Active Substance: FLUOROURACIL
     Dosage: 760 MG, QCY - 1/24 HR
     Route: 040
     Dates: start: 20180424, end: 20180424
  9. IRINOTECAN [Suspect]
     Active Substance: IRINOTECAN
     Indication: COLORECTAL CANCER METASTATIC
     Dosage: 342 MG, 1/24 HR (QCY)
     Route: 042
     Dates: start: 20180514, end: 20180514
  10. FLUOROURACIL. [Suspect]
     Active Substance: FLUOROURACIL
     Dosage: 4560 MG, QCY - 1/48 HR
     Route: 042
     Dates: start: 20180516, end: 20180516
  11. FLUOROURACIL. [Suspect]
     Active Substance: FLUOROURACIL
     Dosage: 4560 MG, QCY - 1/48 HR
     Route: 042
     Dates: start: 20180424, end: 20180424
  12. OMEPRAZOL [OMEPRAZOLE] [Concomitant]
     Active Substance: OMEPRAZOLE
     Indication: HYPERTENSION
     Dosage: 5 MG, QD
     Route: 048
  13. BUDESONIDA [Concomitant]
     Dosage: 1000 MG, Q8H
     Dates: start: 20180604
  14. DEXAMETASON [DEXAMETHASONE] [Concomitant]
     Active Substance: DEXAMETHASONE
     Dosage: 4000 MG, QD
     Dates: start: 20180530
  15. ENOXAPARIN [Concomitant]
     Active Substance: ENOXAPARIN
     Dosage: 40 MG, QD
     Dates: start: 20180528
  16. MIDAZOLAM [Concomitant]
     Active Substance: MIDAZOLAM HYDROCHLORIDE
     Dosage: 5 MG, QD
     Dates: start: 20180606, end: 20180607
  17. AFLIBERCEPT [Suspect]
     Active Substance: AFLIBERCEPT
     Dosage: 316 MG, 1/24 HR (QCY)
     Route: 042
     Dates: start: 20180424, end: 20180424
  18. FUROSEMIDE. [Concomitant]
     Active Substance: FUROSEMIDE
     Dosage: 20 MG, QD
     Dates: start: 20180528, end: 20180607
  19. HYDROCHLOROTHIAZIDE. [Concomitant]
     Active Substance: HYDROCHLOROTHIAZIDE
     Dosage: 12.50 MG, QD
     Dates: start: 20180528, end: 20180601
  20. IPRATROPIUM [Concomitant]
     Active Substance: IPRATROPIUM
     Dosage: 500 MG
  21. LEVOMEPROMAZINE [Concomitant]
     Active Substance: LEVOMEPROMAZINE
     Dosage: 25 MG, QD
     Dates: start: 20180607
  22. PIPERACILINA [Concomitant]
     Dosage: 4000 MG, Q8H
     Dates: start: 20180601
  23. AFLIBERCEPT [Suspect]
     Active Substance: AFLIBERCEPT
     Indication: COLORECTAL CANCER METASTATIC
     Dosage: 316 MG, 1/24 HR (QCY)
     Route: 042
     Dates: start: 20180514, end: 20180514
  24. FOLINIC ACID [Suspect]
     Active Substance: LEUCOVORIN
     Indication: COLORECTAL CANCER METASTATIC
     Dosage: 760 MG, 1/24 HR QCY
     Route: 042
     Dates: start: 20180514, end: 20180514
  25. FOLINIC ACID [Suspect]
     Active Substance: LEUCOVORIN
     Dosage: 760MG,  1/24 HR QCY
     Route: 042
     Dates: start: 20180424, end: 20180424

REACTIONS (1)
  - Oesophagitis [Recovered/Resolved]

NARRATIVE: CASE EVENT DATE: 20180522
